FAERS Safety Report 8789340 (Version 2)
Quarter: 2012Q4

REPORT INFORMATION
  Report Type: Spontaneous
  Country: US (occurrence: None)
  Receive Date: 20120904
  Receipt Date: 20121121
  Transmission Date: 20130627
  Serious: Yes (Other)
  Sender: FDA-Public Use
  Company Number: 20120523

PATIENT
  Age: 59 Year
  Sex: Male

DRUGS (6)
  1. DEXAMETHASONE SODIUM PHOSPHATE [Suspect]
     Indication: CHRONIC MYELOID LEUKEMIA
     Dosage: 40mg/days i, 11-14
     Route: 048
  2. DEXAMETHASONE SODIUM PHOSPHATE [Suspect]
     Indication: CHRONIC MYELOID LEUKEMIA
  3. DASATINIB [Suspect]
     Indication: CHRONIC MYELOID LEUKEMIA
     Dosage: days 1-14
     Route: 048
  4. DOXORUBICIN [Suspect]
     Indication: CHRONIC MYELOID LEUKEMIA
     Dosage: on day 4
     Route: 042
  5. CYCLOPHOSPHAMIDE [Suspect]
     Indication: CHRONIC MYELOID LEUKEMIA
     Route: 042
  6. VINCRISTINE [Suspect]
     Indication: CHRONIC MYELOID LEUKEMIA
     Dosage: on days 4 and 11

REACTIONS (19)
  - Pallor [None]
  - Asthenia [None]
  - Anaemia [None]
  - Hepatosplenomegaly [None]
  - Skin discolouration [None]
  - Myelodysplastic syndrome [None]
  - Diarrhoea haemorrhagic [None]
  - Pyrexia [None]
  - General physical health deterioration [None]
  - Cough [None]
  - Candidiasis [None]
  - Pain in extremity [None]
  - Brain mass [None]
  - Unresponsive to stimuli [None]
  - CNS MUCORMYCOSIS [None]
  - Zygomycosis [None]
  - Central nervous system infection [None]
  - Diverticular perforation [None]
  - Abscess [None]
